FAERS Safety Report 15565648 (Version 2)
Quarter: 2019Q1

REPORT INFORMATION
  Report Type: Spontaneous
  Country: US (occurrence: US)
  Receive Date: 20181030
  Receipt Date: 20190108
  Transmission Date: 20190417
  Serious: Yes (Other)
  Sender: FDA-Public Use
  Company Number: US-BAYER-2018-197935

PATIENT
  Age: 40 Year
  Sex: Female
  Weight: 110.02 kg

DRUGS (4)
  1. MIRENA [Suspect]
     Active Substance: LEVONORGESTREL
     Indication: CONTRACEPTION
     Dosage: 20 MCG/24HR, CONT
     Route: 015
     Dates: start: 201311, end: 20181022
  2. MIRENA [Suspect]
     Active Substance: LEVONORGESTREL
     Indication: CONTRACEPTION
  3. MIRENA [Suspect]
     Active Substance: LEVONORGESTREL
     Indication: CONTRACEPTION
     Dosage: 20 MCG/24HR, CONT
     Route: 015
  4. VITAMIN D [Suspect]
     Active Substance: CHOLECALCIFEROL

REACTIONS (4)
  - Complication of device insertion [None]
  - Cervix injury [None]
  - Uterine spasm [None]
  - Complication of device removal [None]

NARRATIVE: CASE EVENT DATE: 20181022
